FAERS Safety Report 17229937 (Version 1)
Quarter: 2019Q4

REPORT INFORMATION
  Report Type: Spontaneous
  Country: US (occurrence: US)
  Receive Date: 20191210
  Receipt Date: 20191210
  Transmission Date: 20200122
  Serious: Yes (Hospitalization)
  Sender: FDA-Public Use
  Company Number: None

PATIENT
  Age: 71 Year
  Sex: Male
  Weight: 108.86 kg

DRUGS (1)
  1. ATEZOLIZUMAB (ATEZOLIZUMAB 60MG/ML INJ, SOLN) [Suspect]
     Active Substance: ATEZOLIZUMAB
     Indication: NEOPLASM MALIGNANT
     Route: 042
     Dates: start: 20180726, end: 20181111

REACTIONS (5)
  - Eosinophil count increased [None]
  - Infusion related reaction [None]
  - Rash [None]
  - Blister [None]
  - Skin lesion [None]

NARRATIVE: CASE EVENT DATE: 20181111
